FAERS Safety Report 9206165 (Version 1)
Quarter: 2013Q1

REPORT INFORMATION
  Report Type: Spontaneous
  Country: US (occurrence: None)
  Receive Date: 20120731
  Receipt Date: 20120731
  Transmission Date: 20140127
  Serious: Yes (Hospitalization, Other)
  Sender: FDA-Public Use
  Company Number: US2012060001206

PATIENT
  Age: 62 Year
  Sex: Male

DRUGS (4)
  1. BYDUREON [Suspect]
     Route: 058
     Dates: start: 201204
  2. METFORMIN (METFORMIN) [Concomitant]
  3. LISNIOPRIL/USA/(LISINIPRIL) [Concomitant]
  4. TRIAMTERENE AND HYDROCHLOROTHIAZIDE (HYDROCHLOROTHIAZIDE, TRIAMTERENE) [Concomitant]

REACTIONS (4)
  - Dehydration [None]
  - Renal impairment [None]
  - Vomiting [None]
  - Diarrhoea [None]
